FAERS Safety Report 18534798 (Version 1)
Quarter: 2020Q4

REPORT INFORMATION
  Report Type: Report from Study
  Country: US (occurrence: US)
  Receive Date: 20201123
  Receipt Date: 20201123
  Transmission Date: 20210114
  Serious: Yes (Other)
  Sender: FDA-Public Use
  Company Number: US-PFIZER INC-2020324154

PATIENT
  Age: 41 Year
  Sex: Female

DRUGS (4)
  1. ENBREL [Suspect]
     Active Substance: ETANERCEPT
     Dosage: 50 MILLIGRAM, QWK
     Route: 065
  2. METHOTREXATE SODIUM. [Suspect]
     Active Substance: METHOTREXATE SODIUM
     Dosage: UNK
     Route: 065
  3. ENBREL [Suspect]
     Active Substance: ETANERCEPT
     Indication: RHEUMATOID ARTHRITIS
     Dosage: 50 MILLIGRAM, QWK
     Route: 065
     Dates: start: 20200806
  4. ENBREL [Suspect]
     Active Substance: ETANERCEPT
     Dosage: 50 MILLIGRAM, QWK
     Route: 065

REACTIONS (9)
  - Injection site erythema [Not Recovered/Not Resolved]
  - Injection site swelling [Recovered/Resolved]
  - Injection site bruising [Not Recovered/Not Resolved]
  - Injection site induration [Not Recovered/Not Resolved]
  - Haemoglobin decreased [Recovering/Resolving]
  - Injection site discolouration [Unknown]
  - Injection site pain [Not Recovered/Not Resolved]
  - Migraine [Not Recovered/Not Resolved]
  - Injection site pruritus [Recovered/Resolved]

NARRATIVE: CASE EVENT DATE: 2020
